FAERS Safety Report 7384154-3 (Version None)
Quarter: 2011Q1

REPORT INFORMATION
  Report Type: 
  Country: None (occurrence: None)
  Receive Date: 20110330
  Receipt Date: 20110323
  Transmission Date: 20110831
  Serious: Yes (Other)
  Sender: FDA-Public Use
  Company Number: B0702181A

PATIENT
  Age: 44 Year
  Sex: Female

DRUGS (2)
  1. FAMOTIDINE [Concomitant]
     Dosage: 20MG TWICE PER DAY
     Route: 048
  2. SEROXAT [Suspect]
     Indication: ANXIETY
     Dosage: 20MG TWICE PER DAY
     Route: 048
     Dates: start: 20110201, end: 20110226

REACTIONS (2)
  - ABDOMINAL DISCOMFORT [None]
  - HAEMATOCHEZIA [None]
